FAERS Safety Report 23278190 (Version 1)
Quarter: 2023Q4

REPORT INFORMATION
  Report Type: Spontaneous
  Country: US (occurrence: None)
  Receive Date: 20231207
  Receipt Date: 20231207
  Transmission Date: 20240110
  Serious: Yes (Life-Threatening, Hospitalization)
  Sender: FDA-Public Use
  Company Number: None

PATIENT
  Age: 28 Year
  Sex: Male
  Weight: 90 kg

DRUGS (1)
  1. TIANEPTINE [Suspect]
     Active Substance: TIANEPTINE
     Indication: Depression
     Dosage: FREQUENCY : DAILY;?
     Route: 048
     Dates: start: 20231205, end: 20231205

REACTIONS (6)
  - Dizziness [None]
  - Disorientation [None]
  - Loss of consciousness [None]
  - Road traffic accident [None]
  - Unresponsive to stimuli [None]
  - Drug withdrawal syndrome [None]

NARRATIVE: CASE EVENT DATE: 20231205
